FAERS Safety Report 9344164 (Version 1)
Quarter: 2013Q2

REPORT INFORMATION
  Report Type: Spontaneous
  Country: US (occurrence: US)
  Receive Date: 20130612
  Receipt Date: 20130612
  Transmission Date: 20140414
  Serious: Yes (Hospitalization)
  Sender: FDA-Public Use
  Company Number: US-NOVOPROD-380058

PATIENT
  Age: 55 Year
  Sex: Male

DRUGS (1)
  1. NORDITROPIN FLEXPRO 3.3 MG/ML [Suspect]
     Indication: HYPOPITUITARISM
     Dosage: UNK
     Route: 058
     Dates: start: 2008

REACTIONS (2)
  - Pyrexia [Recovered/Resolved]
  - Headache [Recovered/Resolved]
